FAERS Safety Report 7372290-7 (Version None)
Quarter: 2011Q1

REPORT INFORMATION
  Report Type: 
  Country: None (occurrence: None)
  Receive Date: 20110324
  Receipt Date: 20110317
  Transmission Date: 20110831
  Serious: Yes (Hospitalization)
  Sender: FDA-Public Use
  Company Number: A0919662A

PATIENT
  Age: 46 Year
  Sex: Female

DRUGS (2)
  1. LAMICTAL [Suspect]
     Dosage: 200MG UNKNOWN
     Route: 048
     Dates: start: 20090122
  2. ADVAIR DISKUS 100/50 [Suspect]
     Route: 055
     Dates: start: 20090122

REACTIONS (1)
  - ADVERSE EVENT [None]
